FAERS Safety Report 18899821 (Version 3)
Quarter: 2021Q1

REPORT INFORMATION
  Report Type: Report from Study
  Country: PT (occurrence: PT)
  Receive Date: 20210216
  Receipt Date: 20210313
  Transmission Date: 20210420
  Serious: Yes (Death)
  Sender: FDA-Public Use
  Company Number: PT-DECIPHERA PHARMACEUTICALS LLC-2021PT000120

PATIENT
  Age: 42 Year
  Sex: Male

DRUGS (1)
  1. DCC?2618 [Suspect]
     Active Substance: RIPRETINIB
     Indication: GASTROINTESTINAL STROMAL TUMOUR
     Dosage: UNK
     Route: 048
     Dates: start: 20200703, end: 20210203

REACTIONS (1)
  - Death [Fatal]

NARRATIVE: CASE EVENT DATE: 20210203
